FAERS Safety Report 5700241-7 (Version None)
Quarter: 2008Q2

REPORT INFORMATION
  Report Type: 
  Country: None (occurrence: None)
  Receive Date: 20080408
  Receipt Date: 20080408
  Transmission Date: 20081010
  Serious: Yes (Other)
  Sender: FDA-Public Use
  Company Number: None

PATIENT
  Age: 38 Year
  Sex: Female
  Weight: 95.2554 kg

DRUGS (3)
  1. DEPAKOTE ER [Suspect]
     Indication: ANXIETY
     Dosage: 500 MG  2  PO
     Route: 048
     Dates: start: 20080322, end: 20080410
  2. DEPAKOTE ER [Suspect]
     Indication: DISTURBANCE IN ATTENTION
     Dosage: 500 MG  2  PO
     Route: 048
     Dates: start: 20080322, end: 20080410
  3. DEPAKOTE ER [Suspect]
     Indication: THINKING ABNORMAL
     Dosage: 500 MG  2  PO
     Route: 048
     Dates: start: 20080322, end: 20080410

REACTIONS (1)
  - DEPRESSION [None]
